FAERS Safety Report 4777930-4 (Version None)
Quarter: 2005Q3

REPORT INFORMATION
  Report Type: 
  Country: None (occurrence: None)
  Receive Date: 20050922
  Receipt Date: 20050912
  Transmission Date: 20060218
  Serious: Yes (Hospitalization)
  Sender: FDA-Public Use
  Company Number: HQWYE894023MAY05

PATIENT
  Age: 42 Year
  Sex: Female
  Weight: 74.91 kg

DRUGS (3)
  1. EFFEXOR XR [Suspect]
     Dosage: 225 MG ORAL
     Route: 048
     Dates: start: 20040101, end: 20050520
  2. ZYRTEC (CEFTIRIZINE HYDROCHLORIDE) [Concomitant]
  3. NASONEX [Concomitant]

REACTIONS (4)
  - HEPATITIS [None]
  - MYASTHENIC SYNDROME [None]
  - THYMOMA [None]
  - THYROIDITIS [None]
